FAERS Safety Report 5015546-5 (Version None)
Quarter: 2006Q2

REPORT INFORMATION
  Report Type: 
  Country: None (occurrence: None)
  Receive Date: 20060425
  Receipt Date: 20060106
  Transmission Date: 20061013
  Serious: No
  Sender: FDA-Public Use
  Company Number: 2005-BP-19265BP

PATIENT
  Sex: Male

DRUGS (2)
  1. APTIVUS [Suspect]
     Indication: HIV INFECTION
     Dosage: SEE TEXT
     Route: 048
     Dates: start: 20051019
  2. RITONAVIR CAPSULES [Suspect]
     Dosage: SEE TEXT

REACTIONS (1)
  - ELECTROCARDIOGRAM PR PROLONGATION [None]
